FAERS Safety Report 8968755 (Version 2)
Quarter: 2013Q1

REPORT INFORMATION
  Report Type: Spontaneous
  Country: DE (occurrence: None)
  Receive Date: 20121207
  Receipt Date: 20121219
  Transmission Date: 20140127
  Serious: Yes (Hospitalization, Other)
  Sender: FDA-Public Use
  Company Number: AUR-APL-2012-05206

PATIENT
  Age: 60 Year
  Sex: 0

DRUGS (7)
  1. RAMIPRIL (RAMIPRIL) [Suspect]
     Indication: HYPERTENSION
  2. CEFUROXIME [Suspect]
     Indication: PRODUCT USED FOR UNKNOWN INDICATION
  3. ETOMIDATE (ETOMIDATE) [Concomitant]
  4. SUFENTANIL (SUFENTANIL) FENTANIL (SUFENTANIL) [Concomitant]
  5. ATRACURIUM (ATRACURIUM) [Concomitant]
  6. ATROPINE (ATROPINE) [Concomitant]
  7. NOREPINEPHRINE (NOREPINEPHRINE) [Concomitant]

REACTIONS (18)
  - Hypotension [None]
  - Haemodynamic instability [None]
  - Erythema [None]
  - Angioedema [None]
  - Wound haemorrhage [None]
  - Localised intraabdominal fluid collection [None]
  - Disseminated intravascular coagulation [None]
  - Post procedural complication [None]
  - Multi-organ failure [None]
  - Anuria [None]
  - Lactic acidosis [None]
  - Shock [None]
  - Capillary leak syndrome [None]
  - Rubber sensitivity [None]
  - Fibrinolysis increased [None]
  - Hypovolaemia [None]
  - Vascular resistance systemic decreased [None]
  - Anaphylactic reaction [None]
